FAERS Safety Report 5952610-8 (Version None)
Quarter: 2008Q4

REPORT INFORMATION
  Report Type: 
  Country: None (occurrence: None)
  Receive Date: 20081031
  Receipt Date: 20080327
  Transmission Date: 20090506
  Serious: Yes (Other)
  Sender: FDA-Public Use
  Company Number: US-WYE-H03347508

PATIENT
  Age: 61 Year
  Sex: Female
  Weight: 65.83 kg

DRUGS (1)
  1. PREMARIN [Suspect]
     Indication: VAGINAL INFECTION
     Dosage: 2 APPLICATOR 1X PER 1 DAY, VAGINAL
     Route: 067
     Dates: start: 20071025, end: 20071108

REACTIONS (5)
  - DRUG INEFFECTIVE [None]
  - VAGINAL LESION [None]
  - VAGINAL SWELLING [None]
  - VULVOVAGINAL BURNING SENSATION [None]
  - VULVOVAGINAL PRURITUS [None]
